FAERS Safety Report 4357032-1 (Version None)
Quarter: 2004Q2

REPORT INFORMATION
  Report Type: 
  Country: None (occurrence: None)
  Receive Date: 20040512
  Receipt Date: 20040304
  Transmission Date: 20050107
  Serious: Yes (Life-Threatening, Hospitalization)
  Sender: FDA-Public Use
  Company Number: US-GLAXOSMITHKLINE-A0501208A

PATIENT
  Age: 54 Year
  Sex: Female
  Weight: 72.7 kg

DRUGS (4)
  1. COMBIVIR [Suspect]
     Dosage: 1TAB TWICE PER DAY
     Route: 048
     Dates: start: 20000730
  2. CRIXIVAN [Concomitant]
     Dosage: 800MG FOUR TIMES PER DAY
     Dates: start: 20000730
  3. BLOOD PRESSURE MEDICATION [Concomitant]
  4. UNKNOWN MEDICATION [Concomitant]
     Indication: ANXIETY

REACTIONS (13)
  - ANGIONEUROTIC OEDEMA [None]
  - APHAGIA [None]
  - ATAXIA [None]
  - DYSPNOEA [None]
  - GASTRIC DISORDER [None]
  - HYPOTHYROIDISM [None]
  - INCONTINENCE [None]
  - MENTAL IMPAIRMENT [None]
  - NAUSEA [None]
  - NERVOUS SYSTEM DISORDER [None]
  - NEUROPATHY PERIPHERAL [None]
  - POST-TRAUMATIC STRESS DISORDER [None]
  - SLEEP DISORDER [None]
